FAERS Safety Report 7633300-2 (Version None)
Quarter: 2011Q3

REPORT INFORMATION
  Report Type: 
  Country: None (occurrence: None)
  Receive Date: 20110718
  Receipt Date: 20110706
  Transmission Date: 20111222
  Serious: Yes (Other)
  Sender: FDA-Public Use
  Company Number: 11-406

PATIENT
  Sex: Female
  Weight: 58.514 kg

DRUGS (4)
  1. NEURONTIN [Concomitant]
  2. ALEVE (CAPLET) [Suspect]
     Indication: ANALGESIC THERAPY
     Dosage: ONCE DAILY, ORALLY
     Route: 048
     Dates: start: 20110622, end: 20110622
  3. PROPRANOLOL [Concomitant]
  4. XANAX [Concomitant]

REACTIONS (1)
  - DRUG ERUPTION [None]
